FAERS Safety Report 20934990 (Version 2)
Quarter: 2022Q3

REPORT INFORMATION
  Report Type: Spontaneous
  Country: US (occurrence: None)
  Receive Date: 20220608
  Receipt Date: 20220722
  Transmission Date: 20221026
  Serious: Yes (Hospitalization)
  Sender: FDA-Public Use
  Company Number: US-ROCHE-3112901

PATIENT
  Age: 65 Year
  Sex: Female
  Weight: 74.002 kg

DRUGS (2)
  1. ESBRIET [Suspect]
     Active Substance: PIRFENIDONE
     Indication: Interstitial lung disease
     Dosage: 801MG PER DAY
     Route: 048
     Dates: start: 202201
  2. ESBRIET [Suspect]
     Active Substance: PIRFENIDONE
     Indication: Interstitial lung disease
     Route: 048
     Dates: start: 20220106, end: 20220506

REACTIONS (1)
  - Pneumonia [Recovered/Resolved]

NARRATIVE: CASE EVENT DATE: 20220517
